FAERS Safety Report 24623376 (Version 1)
Quarter: 2024Q4

REPORT INFORMATION
  Report Type: Spontaneous
  Country: US (occurrence: US)
  Receive Date: 20241115
  Receipt Date: 20241115
  Transmission Date: 20250115
  Serious: No
  Sender: ALEXION PHARMACEUTICALS
  Company Number: US-AstraZeneca-CH-00708661AM

PATIENT

DRUGS (4)
  1. TRUQAP [Suspect]
     Active Substance: CAPIVASERTIB
     Dosage: UNK
  2. TRUQAP [Suspect]
     Active Substance: CAPIVASERTIB
     Dosage: UNK
  3. TRUQAP [Suspect]
     Active Substance: CAPIVASERTIB
     Dosage: UNK
  4. TRUQAP [Suspect]
     Active Substance: CAPIVASERTIB
     Dosage: UNK

REACTIONS (1)
  - Nail disorder [Unknown]
